FAERS Safety Report 6060147-3 (Version None)
Quarter: 2009Q1

REPORT INFORMATION
  Report Type: 
  Country: None (occurrence: None)
  Receive Date: 20090127
  Receipt Date: 20090122
  Transmission Date: 20090719
  Serious: Yes (Death)
  Sender: FDA-Public Use
  Company Number: 2008-178015-NL

PATIENT
  Age: 78 Year
  Sex: Female

DRUGS (5)
  1. ROCURONIUM BROMIDE [Suspect]
     Indication: MUSCLE RELAXANT THERAPY
     Dosage: 3 ML ONCE
     Route: 040
     Dates: start: 20080523, end: 20080523
  2. REMIFENTANIL HYDROCHLORIDE [Suspect]
     Indication: GENERAL ANAESTHESIA
     Route: 042
     Dates: start: 20080523, end: 20080523
  3. REMIFENTANIL HYDROCHLORIDE [Suspect]
     Indication: GENERAL ANAESTHESIA
     Route: 042
     Dates: start: 20080523, end: 20080523
  4. PROPOFOL [Suspect]
     Indication: GENERAL ANAESTHESIA
     Dosage: 11 ML ONCE
     Route: 042
     Dates: start: 20080523, end: 20080523
  5. OXYGEN [Concomitant]

REACTIONS (8)
  - ANAESTHETIC COMPLICATION [None]
  - ANAPHYLACTIC SHOCK [None]
  - CARDIAC ARREST [None]
  - HYPERHIDROSIS [None]
  - NEUROMUSCULAR BLOCK PROLONGED [None]
  - RESPIRATORY ARREST [None]
  - URINE OUTPUT DECREASED [None]
  - WHEEZING [None]
